FAERS Safety Report 17019239 (Version 1)
Quarter: 2019Q4

REPORT INFORMATION
  Report Type: Report from Study
  Country: US (occurrence: US)
  Receive Date: 20191112
  Receipt Date: 20191112
  Transmission Date: 20200122
  Serious: Yes (Other)
  Sender: FDA-Public Use
  Company Number: NVSC2019US026463

PATIENT
  Age: 70 Year
  Sex: Male

DRUGS (2)
  1. TASIGNA [Suspect]
     Active Substance: NILOTINIB
     Dosage: 150 MG, BID
     Route: 048
  2. TASIGNA [Suspect]
     Active Substance: NILOTINIB
     Indication: CHRONIC MYELOID LEUKAEMIA
     Dosage: 300 MG, BID
     Route: 048
     Dates: start: 20120101

REACTIONS (7)
  - Haemoglobin decreased [Unknown]
  - Weight decreased [Unknown]
  - Blood calcium decreased [Unknown]
  - Diplopia [Recovered/Resolved]
  - Chronic myeloid leukaemia (in remission) [Unknown]
  - Vertigo [Recovered/Resolved]
  - Conjunctival haemorrhage [Recovered/Resolved]

NARRATIVE: CASE EVENT DATE: 201809
